FAERS Safety Report 4685834-0 (Version None)
Quarter: 2005Q2

REPORT INFORMATION
  Report Type: 
  Country: None (occurrence: None)
  Receive Date: 20050607
  Receipt Date: 20050607
  Transmission Date: 20051028
  Serious: Yes (Other)
  Sender: FDA-Public Use
  Company Number: None

PATIENT
  Age: 84 Year
  Sex: Male
  Weight: 104 kg

DRUGS (1)
  1. CIPROFLOXACIN [Suspect]
     Indication: UROSEPSIS
     Dosage: 500 MG PO Q 12
     Route: 048
     Dates: start: 20050326, end: 20050406

REACTIONS (2)
  - CLOSTRIDIAL INFECTION [None]
  - DIARRHOEA [None]
